FAERS Safety Report 13727781 (Version 2)
Quarter: 2017Q3

REPORT INFORMATION
  Report Type: Spontaneous
  Country: FR (occurrence: FR)
  Receive Date: 20170707
  Receipt Date: 20170725
  Transmission Date: 20171127
  Serious: Yes (Other)
  Sender: FDA-Public Use
  Company Number: FR-BAYER-2017-128462

PATIENT
  Age: 31 Year
  Sex: Female

DRUGS (1)
  1. MIRENA [Suspect]
     Active Substance: LEVONORGESTREL
     Indication: CONTRACEPTION
     Dosage: 20 MCG/24HR, CONT
     Route: 015
     Dates: start: 19990901, end: 20120501

REACTIONS (11)
  - Fatigue [Not Recovered/Not Resolved]
  - Dizziness [Recovered/Resolved]
  - Acne [Not Recovered/Not Resolved]
  - Loss of libido [Not Recovered/Not Resolved]
  - Anxiety [Recovered/Resolved]
  - Vertigo [Recovered/Resolved]
  - Depression [Not Recovered/Not Resolved]
  - Aggression [Recovered/Resolved]
  - Weight decreased [Not Recovered/Not Resolved]
  - Phobia [Recovered/Resolved]
  - Stress [Not Recovered/Not Resolved]

NARRATIVE: CASE EVENT DATE: 1999
